FAERS Safety Report 20582867 (Version 2)
Quarter: 2023Q1

REPORT INFORMATION
  Report Type: Spontaneous
  Country: US (occurrence: US)
  Receive Date: 20220311
  Receipt Date: 20230228
  Transmission Date: 20230418
  Serious: No
  Sender: FDA-Public Use
  Company Number: US-HORIZON THERAPEUTICS-HZN-2021-003808

PATIENT

DRUGS (1)
  1. PENNSAID [Suspect]
     Active Substance: DICLOFENAC SODIUM
     Indication: Osteoarthritis
     Dosage: 2 PUMPS TO THE AFFECTED AREA 2 TIMES A DAY
     Route: 065

REACTIONS (3)
  - Application site pain [Unknown]
  - Application site exfoliation [Unknown]
  - Application site erythema [Unknown]
